FAERS Safety Report 7844755-2 (Version None)
Quarter: 2011Q4

REPORT INFORMATION
  Report Type: 
  Country: None (occurrence: None)
  Receive Date: 20111017
  Receipt Date: 20111005
  Transmission Date: 20120403
  Serious: Yes (Hospitalization)
  Sender: FDA-Public Use
  Company Number: 2011196382

PATIENT
  Age: 65 Year
  Sex: Male

DRUGS (7)
  1. PERINDOPRIL ERBUMINE [Concomitant]
  2. SIMVASTATIN [Concomitant]
  3. GLICLAZIDE [Concomitant]
  4. TAMSULOSIN HCL [Concomitant]
  5. METFORMIN HCL [Concomitant]
  6. DALTEPARIN SODIUM [Suspect]
     Indication: LUNG NEOPLASM MALIGNANT
     Dates: start: 20110708
  7. ASPIRIN [Concomitant]

REACTIONS (1)
  - ANGINA PECTORIS [None]
